FAERS Safety Report 20010889 (Version 5)
Quarter: 2021Q4

REPORT INFORMATION
  Report Type: Spontaneous
  Country: US (occurrence: CA)
  Receive Date: 20211028
  Receipt Date: 20211206
  Transmission Date: 20220304
  Serious: Yes (Other)
  Sender: FDA-Public Use
  Company Number: US-ORGANON-O2110CAN002717

PATIENT
  Sex: Female

DRUGS (1)
  1. NEXPLANON [Suspect]
     Active Substance: ETONOGESTREL
     Indication: Contraception
     Dosage: 1 IMPLANT FOR EVERY 3 YEARS, LEFT ARM, ONCE
     Route: 059
     Dates: start: 20211025, end: 20211026

REACTIONS (5)
  - Device expulsion [Recovered/Resolved]
  - Implant site swelling [Unknown]
  - Implant site bruising [Unknown]
  - Implant site haemorrhage [Unknown]
  - Device placement issue [Recovered/Resolved]

NARRATIVE: CASE EVENT DATE: 20210101
